FAERS Safety Report 14340667 (Version 2)
Quarter: 2018Q1

REPORT INFORMATION
  Report Type: Report from Study
  Country: None (occurrence: IL)
  Receive Date: 20180101
  Receipt Date: 20180116
  Transmission Date: 20180509
  Serious: Yes (Hospitalization)
  Sender: FDA-Public Use
  Company Number: IL-ABBVIE-18K-082-2208888-00

PATIENT
  Age: 70 Year
  Sex: Male

DRUGS (2)
  1. DUODOPA [Suspect]
     Active Substance: CARBIDOPA\LEVODOPA
     Dosage: CURRENT MORNING DOSE 10ML,??CURRENT CONTINUOUS DOSE 3ML/HOUR,??CURRENT EXTRA DOSE 1ML.
     Route: 050
  2. DUODOPA [Suspect]
     Active Substance: CARBIDOPA\LEVODOPA
     Indication: PARKINSON^S DISEASE
     Dosage: CURRENT MORNING DOSE 10ML,??CURRENT CONTINUOUS DOSE 3ML/HOUR,??CURRENT EXTRA DOSE 1ML.
     Route: 050
     Dates: start: 20171129, end: 20171230

REACTIONS (2)
  - Clostridial sepsis [Recovered/Resolved]
  - Blood pressure decreased [Recovering/Resolving]

NARRATIVE: CASE EVENT DATE: 2017
